FAERS Safety Report 6843765-1 (Version None)
Quarter: 2010Q3

REPORT INFORMATION
  Report Type: 
  Country: None (occurrence: None)
  Receive Date: 20100715
  Receipt Date: 20100602
  Transmission Date: 20110219
  Serious: Yes (Hospitalization, Other)
  Sender: FDA-Public Use
  Company Number: US-BAXTER-2008BH013045

PATIENT
  Age: 70 Year
  Sex: Female
  Weight: 53 kg

DRUGS (22)
  1. HEPARIN SODIUM [Suspect]
     Indication: INTRAVENOUS CATHETER MANAGEMENT
     Route: 042
     Dates: start: 20070926, end: 20070901
  2. HEPARIN SODIUM [Suspect]
     Route: 042
     Dates: start: 20071013, end: 20071018
  3. HEPARIN SODIUM [Suspect]
     Route: 042
     Dates: start: 20070327, end: 20070327
  4. HEPARIN SODIUM [Suspect]
     Route: 042
     Dates: start: 20080130, end: 20080130
  5. HEPARIN SODIUM [Suspect]
     Route: 042
     Dates: start: 20081111, end: 20081111
  6. LEVSIN [Concomitant]
     Indication: PRODUCT USED FOR UNKNOWN INDICATION
     Route: 065
  7. KAOPECTATE [Concomitant]
     Indication: PRODUCT USED FOR UNKNOWN INDICATION
     Route: 065
  8. LEXAPRO [Concomitant]
     Indication: PRODUCT USED FOR UNKNOWN INDICATION
     Route: 065
  9. MARINOL [Concomitant]
     Indication: PRODUCT USED FOR UNKNOWN INDICATION
     Route: 065
  10. MORPHINE [Concomitant]
     Indication: PRODUCT USED FOR UNKNOWN INDICATION
     Route: 065
  11. PAREGORIC [Concomitant]
     Indication: PRODUCT USED FOR UNKNOWN INDICATION
     Route: 065
  12. QUESTRAN [Concomitant]
     Indication: PRODUCT USED FOR UNKNOWN INDICATION
     Route: 065
  13. VICODIN [Concomitant]
     Indication: PRODUCT USED FOR UNKNOWN INDICATION
     Route: 065
  14. ZOFRAN [Concomitant]
     Indication: PRODUCT USED FOR UNKNOWN INDICATION
     Route: 042
  15. BISMUTH SUBSALICYLATE [Concomitant]
     Indication: PRODUCT USED FOR UNKNOWN INDICATION
     Route: 065
  16. DICYCLOMINE [Concomitant]
     Indication: PRODUCT USED FOR UNKNOWN INDICATION
     Route: 065
  17. VITAMIN TAB [Concomitant]
     Indication: PRODUCT USED FOR UNKNOWN INDICATION
     Route: 065
  18. IRON SUPPLEMENT [Concomitant]
     Indication: PRODUCT USED FOR UNKNOWN INDICATION
     Route: 065
  19. LIBRAX [Concomitant]
     Indication: PRODUCT USED FOR UNKNOWN INDICATION
     Route: 065
  20. CHLOESTYRAMINE [Concomitant]
     Indication: PRODUCT USED FOR UNKNOWN INDICATION
     Route: 065
  21. HYOSCYAMINE [Concomitant]
     Indication: PRODUCT USED FOR UNKNOWN INDICATION
     Route: 065
  22. MACRODANTIN [Concomitant]
     Indication: PRODUCT USED FOR UNKNOWN INDICATION
     Route: 065

REACTIONS (18)
  - ABDOMINAL PAIN [None]
  - ADENOMATOUS POLYPOSIS COLI [None]
  - ANAEMIA [None]
  - BLADDER DISORDER [None]
  - CHOLELITHIASIS [None]
  - CONSTIPATION [None]
  - CYSTITIS INTERSTITIAL [None]
  - DYSPNOEA [None]
  - DYSURIA [None]
  - ERYTHEMA [None]
  - FLUSHING [None]
  - HYDRONEPHROSIS [None]
  - NAUSEA [None]
  - OEDEMA MOUTH [None]
  - RASH [None]
  - RENAL DISORDER [None]
  - URINARY TRACT INFECTION [None]
  - VOMITING [None]
